FAERS Safety Report 8476448-5 (Version None)
Quarter: 2012Q2

REPORT INFORMATION
  Report Type: 
  Country: None (occurrence: None)
  Receive Date: 20120628
  Receipt Date: 20120622
  Transmission Date: 20120825
  Serious: Yes (Hospitalization)
  Sender: FDA-Public Use
  Company Number: US-ELI_LILLY_AND_COMPANY-US201205005989

PATIENT
  Sex: Male
  Weight: 181 kg

DRUGS (24)
  1. PEMETREXED [Suspect]
     Indication: LIP AND/OR ORAL CAVITY CANCER
     Dosage: 500 MG/M2, DAY 1 EVERY 21 DAYS
     Route: 042
     Dates: start: 20120418, end: 20120509
  2. ACETAMINOPHEN [Concomitant]
  3. CETUXIMAB [Suspect]
     Indication: LIP AND/OR ORAL CAVITY CANCER
     Dosage: 250 MG/M2, WEEKLY (1/W)
     Route: 042
     Dates: start: 20120411, end: 20120509
  4. AMLODIPINE BESYLATE [Concomitant]
  5. VITAMIN B-12 [Concomitant]
     Indication: SUPPLEMENTATION THERAPY
     Dosage: UNK
     Dates: start: 20120403
  6. ZETIA [Concomitant]
  7. OMEPRAZOLE [Concomitant]
  8. COMPAZINE [Concomitant]
  9. FOLIC ACID [Concomitant]
  10. METOLAZONE [Concomitant]
  11. ADVAIR DISKUS 100/50 [Concomitant]
  12. MAGNESIUM HYDROXIDE TAB [Concomitant]
  13. DOXYCYCLINE [Concomitant]
  14. POTASSIUM CHLORIDE [Concomitant]
  15. RADIATION [Suspect]
     Indication: LIP AND/OR ORAL CAVITY CANCER
     Dosage: 5 DAYS PER WEEK FOR 7 WEEKS
     Dates: start: 20120418, end: 20120509
  16. RADIATION [Suspect]
     Dosage: UNK
     Dates: start: 20120529
  17. SIMVASTATIN [Concomitant]
  18. DIOVAN HCT [Concomitant]
  19. PERSANTINE [Concomitant]
  20. CIPRO [Concomitant]
  21. MUCINEX [Concomitant]
  22. LIDOCAINE [Concomitant]
  23. VENLAFAXINE [Concomitant]
  24. ROXICET [Concomitant]

REACTIONS (8)
  - VOMITING [None]
  - CELLULITIS [None]
  - FEBRILE NEUTROPENIA [None]
  - DEHYDRATION [None]
  - NAUSEA [None]
  - CONSTIPATION [None]
  - STOMATITIS [None]
  - ABDOMINAL PAIN [None]
